FAERS Safety Report 9311045 (Version 1)
Quarter: 2013Q2

REPORT INFORMATION
  Report Type: Spontaneous
  Country: PE (occurrence: PE)
  Receive Date: 20130528
  Receipt Date: 20130528
  Transmission Date: 20140414
  Serious: Yes (Other)
  Sender: FDA-Public Use
  Company Number: PE-ABBOTT-13X-127-1093753-00

PATIENT
  Age: 76 Year
  Sex: Male

DRUGS (5)
  1. KLARICID IV [Suspect]
     Indication: CHRONIC OBSTRUCTIVE PULMONARY DISEASE
     Route: 042
  2. MOXIFLOXACIN [Concomitant]
     Indication: CHRONIC OBSTRUCTIVE PULMONARY DISEASE
     Route: 042
  3. OMEPRAZOLE [Concomitant]
     Indication: GASTRITIS
  4. ADRENALINE [Concomitant]
     Indication: LARYNGOSPASM
  5. COMBIVENT [Concomitant]
     Indication: CHRONIC OBSTRUCTIVE PULMONARY DISEASE

REACTIONS (1)
  - Laryngospasm [Recovered/Resolved]
